FAERS Safety Report 7979651-3 (Version None)
Quarter: 2011Q4

REPORT INFORMATION
  Report Type: 
  Country: None (occurrence: None)
  Receive Date: 20111214
  Receipt Date: 20111208
  Transmission Date: 20120403
  Serious: Yes (Hospitalization)
  Sender: FDA-Public Use
  Company Number: JP-NAPPMUNDI-MAG-2011-0001785

PATIENT
  Sex: Female

DRUGS (27)
  1. ZOLPIDEM [Concomitant]
     Dosage: UNK
     Dates: start: 20110701
  2. FENTANYL [Concomitant]
     Indication: CANCER PAIN
     Dosage: UNK
     Route: 042
     Dates: start: 20111012
  3. LANSOPRAZOLE [Concomitant]
     Indication: GASTROINTESTINAL MUCOSAL DISORDER
     Dosage: 5 MG, DAILY
     Route: 048
     Dates: start: 20111018
  4. KN SOL. 3B [Concomitant]
     Indication: FLUID REPLACEMENT
     Dosage: 500 ML, UNK
     Dates: start: 20111011
  5. FLADD                              /00519101/ [Concomitant]
     Indication: NUTRITIONAL SUPPORT
     Dosage: 30 MG, DAILY
     Route: 042
     Dates: start: 20111011
  6. FENTANYL-100 [Suspect]
     Indication: CANCER PAIN
     Dosage: 8.4 MG, UNK
     Route: 062
     Dates: start: 20110701, end: 20111011
  7. RIZE                               /00624801/ [Concomitant]
     Indication: ANXIETY
     Dosage: UNK
     Route: 048
     Dates: start: 20110701
  8. VITAMIN C                          /00008001/ [Concomitant]
     Indication: NUTRITIONAL SUPPORT
     Dosage: 200 MG, DAILY
     Route: 042
     Dates: start: 20111011
  9. KN NO.4 [Concomitant]
     Indication: FLUID REPLACEMENT
     Dosage: 500 ML, DAILY
     Route: 042
     Dates: start: 20111011
  10. CEFMETAZOLE [Concomitant]
     Indication: INFECTION PROPHYLAXIS
     Dosage: UNK
     Route: 042
     Dates: start: 20111013
  11. KENKETSU GLOVENIN-I-NICHIYAKU [Concomitant]
     Dosage: 1000 MG, DAILY
     Route: 042
     Dates: start: 20111020, end: 20111021
  12. OXYCODONE HCL [Suspect]
     Dosage: 10 MG, PRN
     Route: 048
     Dates: start: 20111004, end: 20111011
  13. DEXTROSE [Concomitant]
     Indication: NUTRITIONAL SUPPORT
     Dosage: 500 ML, DAILY
     Route: 042
     Dates: start: 20111011
  14. KENEI G [Concomitant]
     Indication: INTESTINAL OBSTRUCTION
     Dosage: UNK
     Route: 054
     Dates: start: 20111013
  15. ENSURE                             /06184901/ [Concomitant]
     Indication: NUTRITIONAL SUPPORT
     Dosage: UNK
     Dates: start: 20111016
  16. ZOLPIDEM [Concomitant]
     Indication: INSOMNIA
     Dosage: UNK
     Dates: start: 20111012
  17. LYRICA [Concomitant]
     Indication: CANCER PAIN
     Dosage: 150 MG, DAILY
     Route: 048
     Dates: start: 20111014
  18. LAXOBERON [Concomitant]
     Indication: INTESTINAL OBSTRUCTION
     Dosage: UNK
     Route: 048
     Dates: start: 20111016
  19. OXYCODONE HCL [Suspect]
     Indication: CANCER PAIN
     Dosage: 50 MG, PRN
     Route: 048
     Dates: start: 20110201, end: 20111011
  20. SHAKUYAKUKANZOTO [Concomitant]
     Indication: CANCER PAIN
     Dosage: 6 GRAM, DAILY
     Dates: start: 20110701
  21. MAGMITT [Concomitant]
     Indication: CONSTIPATION
     Dosage: 1500 MG, DAILY
     Route: 048
     Dates: start: 20110201
  22. DAIKENTYUTO [Concomitant]
     Indication: CANCER PAIN
     Dosage: 7.5 GRAM, DAILY
     Route: 048
     Dates: start: 20111017
  23. MUCOSTA [Concomitant]
     Indication: GASTROINTESTINAL MUCOSAL DISORDER
     Dosage: 300 MG, DAILY
     Route: 048
     Dates: start: 20111008
  24. ESTRANA [Concomitant]
     Indication: MENOPAUSAL SYMPTOMS
     Dosage: UNK
     Dates: start: 20110701
  25. PANTOSIN [Concomitant]
     Indication: NUTRITIONAL SUPPORT
     Dosage: 600 MG, DAILY
     Route: 042
     Dates: start: 20111011
  26. TPN ELECTROLYTES IN PLASTIC CONTAINER [Concomitant]
     Indication: FLUID REPLACEMENT
     Dosage: UNK
     Route: 042
     Dates: start: 20111011
  27. PRIMPERAN TAB [Concomitant]
     Indication: NAUSEA
     Dosage: 10 MG, DAILY
     Route: 042
     Dates: start: 20111011

REACTIONS (2)
  - INTESTINAL OBSTRUCTION [None]
  - URINARY TRACT INFECTION [None]
